FAERS Safety Report 7671700-5 (Version None)
Quarter: 2011Q3

REPORT INFORMATION
  Report Type: 
  Country: None (occurrence: None)
  Receive Date: 20110726
  Receipt Date: 20110719
  Transmission Date: 20111222
  Serious: Yes (Other)
  Sender: FDA-Public Use
  Company Number: 2011029207

PATIENT
  Age: 58 Year
  Sex: Female
  Weight: 53.5244 kg

DRUGS (16)
  1. DARVOCET [Concomitant]
  2. COUMADIN [Concomitant]
  3. ADVAIR DISKUS 100/50 [Concomitant]
  4. LIOTHYRONINE SODIUM [Concomitant]
  5. ZOCOR [Concomitant]
  6. HIZENTRA [Suspect]
     Indication: IMMUNODEFICIENCY COMMON VARIABLE
     Dosage: 6 G 1X/WEEK, 6 G (30 ML) IN 2-3 SITES OVER 75 MINUTES SUBCUTANEOUS), 4 GM 20 ML VIAL SUBCUTANEOUS)
     Route: 058
     Dates: start: 20101015, end: 20101015
  7. AMBIEN (ZOLIPIDEM TARTRATE) [Concomitant]
  8. PREDNISONE [Concomitant]
  9. HIZENTRA [Suspect]
  10. ALLEGRA [Concomitant]
  11. FLONASE (FLUTICASEON PROPIONATE) [Concomitant]
  12. PRILOSEC [Concomitant]
  13. CARDIZEM [Concomitant]
  14. LEVOTHYROXINE SODIUM [Concomitant]
  15. NEURONTIN [Concomitant]
  16. DIGOXIN [Concomitant]

REACTIONS (1)
  - URINARY TRACT INFECTION [None]
